FAERS Safety Report 4566351-5 (Version None)
Quarter: 2005Q1

REPORT INFORMATION
  Report Type: 
  Country: None (occurrence: None)
  Receive Date: 20050126
  Receipt Date: 20050126
  Transmission Date: 20050727
  Serious: Yes (Other)
  Sender: FDA-Public Use
  Company Number: None

PATIENT
  Age: 76 Year
  Sex: Male
  Weight: 97.1 kg

DRUGS (10)
  1. GATIFLOXACIN [Suspect]
  2. ATENOLOL [Concomitant]
  3. TERAZOSIN HCL [Concomitant]
  4. HYDROXYZINE HCL [Concomitant]
  5. IRBESARTAN [Concomitant]
  6. OMEPRAZOLE [Concomitant]
  7. NITROGLYCERIN [Concomitant]
  8. SIMVASTATIN [Concomitant]
  9. ALBUTEROL [Concomitant]
  10. FLUOROMETHOLONE [Concomitant]

REACTIONS (1)
  - RASH [None]
